FAERS Safety Report 8890061 (Version 1)
Quarter: 2012Q4

REPORT INFORMATION
  Report Type: Spontaneous
  Country: US (occurrence: None)
  Receive Date: 20121105
  Receipt Date: 20121105
  Transmission Date: 20130627
  Serious: Yes (Other)
  Sender: FDA-Public Use
  Company Number: None

PATIENT
  Age: 75 Year
  Sex: Female
  Weight: 60.33 kg

DRUGS (1)
  1. DOXYCYCLINE [Suspect]
     Indication: SINUS INFECTION
     Dosage: one tablet 2 times day po
     Route: 048
     Dates: start: 20121024, end: 20121025

REACTIONS (3)
  - Sinusitis [None]
  - Odynophagia [None]
  - Oesophagitis ulcerative [None]
